FAERS Safety Report 8503139-4 (Version None)
Quarter: 2012Q2

REPORT INFORMATION
  Report Type: 
  Country: None (occurrence: None)
  Receive Date: 20120405
  Receipt Date: 20100427
  Transmission Date: 20120825
  Serious: Yes (Disabling, Other)
  Sender: FDA-Public Use
  Company Number: PHHY2010US26079

PATIENT
  Age: 67 Year
  Sex: Female
  Weight: 51.7 kg

DRUGS (9)
  1. NORVASC [Concomitant]
  2. SIMVASTATIN [Concomitant]
  3. MULTIVITAMIN [Concomitant]
  4. RECLAST [Suspect]
     Dosage: 5 MG, INTRAVENOUS
     Route: 042
     Dates: start: 20091028
  5. ZOCOR [Concomitant]
  6. ASCORBIC ACID [Concomitant]
  7. CALCIUM CARBONATE [Concomitant]
  8. VITAMIN D [Concomitant]
  9. VITAMIN E [Concomitant]

REACTIONS (8)
  - ARTHRALGIA [None]
  - ABDOMINAL DISCOMFORT [None]
  - MUSCULOSKELETAL PAIN [None]
  - INFLUENZA LIKE ILLNESS [None]
  - FATIGUE [None]
  - PAIN IN EXTREMITY [None]
  - MYALGIA [None]
  - NAUSEA [None]
